FAERS Safety Report 24025475 (Version 2)
Quarter: 2024Q2

REPORT INFORMATION
  Report Type: Report from Study
  Country: CN (occurrence: CN)
  Receive Date: 20240628
  Receipt Date: 20240628
  Transmission Date: 20240716
  Serious: No
  Sender: FDA-Public Use
  Company Number: CN-ROCHE-3216165

PATIENT
  Age: 63 Year
  Sex: Female
  Weight: 61.5 kg

DRUGS (3)
  1. ALECENSA [Suspect]
     Active Substance: ALECTINIB HYDROCHLORIDE
     Indication: Lung adenocarcinoma
     Dosage: 150MG* 224CAPSULES (56CAPSULES* 4 SMALL BOXES)
     Route: 048
     Dates: start: 20211213
  2. ALECENSA [Suspect]
     Active Substance: ALECTINIB HYDROCHLORIDE
     Dosage: 150MG* 224CAPSULES (56CAPSULES* 4 SMALL BOXES)
     Route: 048
  3. NIFEDIPINE [Concomitant]
     Active Substance: NIFEDIPINE
     Indication: Hypertension
     Dosage: 30MG*7
     Route: 048

REACTIONS (7)
  - Generalised oedema [Recovered/Resolved]
  - Asthenia [Recovering/Resolving]
  - Insomnia [Not Recovered/Not Resolved]
  - Upper respiratory tract infection [Recovering/Resolving]
  - Decreased immune responsiveness [Unknown]
  - Hypothyroidism [Recovered/Resolved]
  - Calcium deficiency [Not Recovered/Not Resolved]

NARRATIVE: CASE EVENT DATE: 20211213
